FAERS Safety Report 16831379 (Version 1)
Quarter: 2019Q3

REPORT INFORMATION
  Report Type: Spontaneous
  Country: FR (occurrence: FR)
  Receive Date: 20190920
  Receipt Date: 20190920
  Transmission Date: 20191005
  Serious: Yes (Hospitalization)
  Sender: FDA-Public Use
  Company Number: FR-ZYDUS-040705

PATIENT
  Age: 30 Year
  Sex: Male
  Weight: 101 kg

DRUGS (11)
  1. THIAMINE. [Concomitant]
     Active Substance: THIAMINE
     Indication: VITAMIN B1 DEFICIENCY
     Route: 048
     Dates: start: 201906
  2. SPIRONOLACTONE. [Suspect]
     Active Substance: SPIRONOLACTONE
     Indication: VARICES OESOPHAGEAL
     Route: 048
     Dates: start: 20190627, end: 20190730
  3. NEFOPAM (CHLORHYDRATE DE) [Suspect]
     Active Substance: NEFOPAM HYDROCHLORIDE
     Indication: PAIN
     Route: 048
     Dates: end: 20190730
  4. CEFTRIAXONE/CEFTRIAXONE SODIUM [Concomitant]
     Route: 048
     Dates: start: 20190622, end: 20190701
  5. CARVEDILOL/CARVEDILOL HYDROCHLODRIDE [Concomitant]
     Indication: PROPHYLAXIS
     Route: 048
     Dates: start: 20190730, end: 20190730
  6. LEVOTHYROXINE. [Concomitant]
     Active Substance: LEVOTHYROXINE
     Indication: HYPOTHYROIDISM
     Route: 048
  7. PYRIDOXINE [Concomitant]
     Active Substance: PYRIDOXINE
     Indication: VITAMIN B6 DEFICIENCY
     Route: 048
     Dates: start: 201906
  8. FUROSEMIDE. [Suspect]
     Active Substance: FUROSEMIDE
     Indication: POLYURIA
     Route: 048
     Dates: start: 20190627, end: 20190802
  9. LANSOPRAZOLE. [Suspect]
     Active Substance: LANSOPRAZOLE
     Indication: PROPHYLAXIS
     Route: 048
     Dates: start: 20190621, end: 20190801
  10. LACTULOSE. [Suspect]
     Active Substance: LACTULOSE
     Indication: HEPATIC ENCEPHALOPATHY PROPHYLAXIS
     Route: 048
     Dates: start: 201906, end: 20190803
  11. OXAZEPAM. [Concomitant]
     Active Substance: OXAZEPAM
     Indication: ANXIETY
     Route: 048

REACTIONS (1)
  - Toxic skin eruption [Recovered/Resolved]

NARRATIVE: CASE EVENT DATE: 20190725
